FAERS Safety Report 4559720-0 (Version None)
Quarter: 2005Q1

REPORT INFORMATION
  Report Type: 
  Country: None (occurrence: None)
  Receive Date: 20050113
  Receipt Date: 20040126
  Transmission Date: 20050727
  Serious: Yes (Hospitalization)
  Sender: FDA-Public Use
  Company Number: PHEH2004US00836

PATIENT
  Sex: Female
  Weight: 63.5 kg

DRUGS (13)
  1. SANDIMMUNE [Suspect]
     Indication: HEART TRANSPLANT
     Dosage: ORAL
     Route: 048
  2. FOSAMAX [Concomitant]
  3. PHENOBARBITAL TAB [Concomitant]
  4. TRAZODONE (TRAZODONE) [Concomitant]
  5. PREDNISONE [Concomitant]
  6. EFFEXOR [Concomitant]
  7. LAMICTAL [Concomitant]
  8. BUSPAR [Concomitant]
  9. NEURONTIN [Concomitant]
  10. TOPAMAX [Concomitant]
  11. NORVASC [Concomitant]
  12. PREVACID [Concomitant]
  13. REMINYL [Concomitant]

REACTIONS (2)
  - DIARRHOEA [None]
  - INFECTION [None]
